FAERS Safety Report 25583193 (Version 1)
Quarter: 2025Q3

REPORT INFORMATION
  Report Type: Spontaneous
  Country: EU (occurrence: EU)
  Receive Date: 20250721
  Receipt Date: 20250721
  Transmission Date: 20251020
  Serious: Yes (Hospitalization, Other)
  Sender: JOHNSON AND JOHNSON
  Company Number: EU-JNJFOC-20250719329

PATIENT
  Sex: Female

DRUGS (3)
  1. SPRAVATO [Suspect]
     Active Substance: ESKETAMINE
     Indication: Product used for unknown indication
     Route: 045
     Dates: start: 20240904, end: 20240904
  2. SPRAVATO [Suspect]
     Active Substance: ESKETAMINE
     Route: 045
     Dates: start: 20240911, end: 20250326
  3. SPRAVATO [Suspect]
     Active Substance: ESKETAMINE
     Route: 045
     Dates: start: 20250331, end: 20250331

REACTIONS (6)
  - Psychotic symptom [Unknown]
  - Suicidal ideation [Recovering/Resolving]
  - Somnolence [Unknown]
  - Anxiety [Unknown]
  - Dizziness [Unknown]
  - Mood altered [Unknown]

NARRATIVE: CASE EVENT DATE: 20240904
